FAERS Safety Report 8334288-1 (Version None)
Quarter: 2012Q2

REPORT INFORMATION
  Report Type: 
  Country: None (occurrence: None)
  Receive Date: 20120503
  Receipt Date: 20120503
  Transmission Date: 20120825
  Serious: Yes (Death, Other)
  Sender: FDA-Public Use
  Company Number: US-PFIZER INC-2012023494

PATIENT
  Sex: Female
  Weight: 106.6 kg

DRUGS (34)
  1. ZYVOX [Interacting]
     Indication: PYREXIA
  2. ZYVOX [Interacting]
  3. WELLBUTRIN [Interacting]
     Indication: SEROTONIN SYNDROME
     Dosage: 75 MG, 2X/DAY
     Route: 048
  4. ZYVOX [Suspect]
     Indication: PNEUMONIA
     Dosage: 600 MG, Q 12 H
     Route: 042
     Dates: start: 20110718, end: 20110721
  5. ACETYLSALICYLIC ACID [Concomitant]
     Dosage: UNK
  6. VERSED [Concomitant]
     Dosage: UNK
  7. MORPHINE [Concomitant]
     Dosage: UNK
     Dates: start: 20110628, end: 20110718
  8. DIPHENHYDRAMINE [Concomitant]
     Dosage: UNK
     Dates: start: 20110718, end: 20110721
  9. BUPROPION HCL [Interacting]
     Indication: DEPRESSION
     Dosage: 150 MG, 3X/DAY
     Route: 048
     Dates: end: 20110721
  10. SENOKOT [Concomitant]
     Dosage: UNK
  11. MUCOMYST [Concomitant]
     Dosage: UNK
  12. ZOLPIDEM [Concomitant]
     Dosage: UNK
     Dates: start: 20110713, end: 20110715
  13. MELATONIN [Concomitant]
     Dosage: UNK
  14. HYDROCORTISONE [Concomitant]
     Dosage: UNK
     Dates: start: 20110701, end: 20110709
  15. DIAZEPAM [Concomitant]
     Dosage: UNK
     Dates: start: 20110706, end: 20110708
  16. VENLAFAXINE [Concomitant]
     Dosage: 37.5 MG, UNK
  17. CYMBALTA [Interacting]
     Indication: DEPRESSION
     Dosage: 60 MG, DAILY
     Route: 048
     Dates: end: 20110720
  18. FLUOXETINE [Concomitant]
     Dosage: 40 MG, UNK
     Dates: start: 20110629, end: 20110710
  19. AMIODARONE [Concomitant]
     Dosage: UNK
     Dates: start: 20110630, end: 20110721
  20. NEXIUM [Concomitant]
     Dosage: UNK
  21. ATROVENT [Concomitant]
     Dosage: UNK
  22. SIMVASTATIN [Concomitant]
     Dosage: UNK
     Dates: start: 20110624, end: 20110720
  23. DORIPENEM [Concomitant]
     Dosage: UNK
  24. LISINOPRIL [Concomitant]
     Dosage: UNK
  25. METOPROLOL [Concomitant]
     Dosage: UNK
     Dates: start: 20110624, end: 20110628
  26. COREG [Concomitant]
     Dosage: UNK
  27. MIDAZOLAM [Concomitant]
  28. ZYVOX [Interacting]
     Indication: STAPHYLOCOCCAL INFECTION
  29. ZYVOX [Interacting]
     Indication: INFECTION
  30. WELLBUTRIN [Interacting]
     Dosage: UNK
     Route: 048
  31. DITROPAN [Concomitant]
     Dosage: UNK
  32. MIRAPEX [Concomitant]
     Dosage: UNK
  33. BUMEX [Concomitant]
     Dosage: UNK
  34. FENTANYL [Concomitant]
     Dosage: UNK
     Dates: start: 20110719, end: 20110720

REACTIONS (3)
  - HYPERTHERMIA MALIGNANT [None]
  - DRUG INTERACTION [None]
  - SEROTONIN SYNDROME [None]
